FAERS Safety Report 5508215-6 (Version None)
Quarter: 2007Q4

REPORT INFORMATION
  Report Type: 
  Country: None (occurrence: None)
  Receive Date: 20071030
  Receipt Date: 20070907
  Transmission Date: 20080405
  Serious: No
  Sender: FDA-Public Use
  Company Number: 267418

PATIENT
  Age: 86 Year
  Sex: Male

DRUGS (2)
  1. LEVEMIR [Suspect]
     Dosage: 8 IU, QD (EVENING), SUBCUTANEOUS
     Route: 058
     Dates: end: 20070903
  2. GLUCOPHAGE /00082701/ (METFORMIN) [Concomitant]

REACTIONS (1)
  - BLOOD GLUCOSE INCREASED [None]
